FAERS Safety Report 8012008-8 (Version None)
Quarter: 2011Q4

REPORT INFORMATION
  Report Type: 
  Country: None (occurrence: None)
  Receive Date: 20111228
  Receipt Date: 20111213
  Transmission Date: 20120403
  Serious: Yes (Life-Threatening, Hospitalization)
  Sender: FDA-Public Use
  Company Number: FR-GLAXOSMITHKLINE-B0766304A

PATIENT
  Sex: Female
  Weight: 50 kg

DRUGS (1)
  1. ARIXTRA [Suspect]
     Indication: THROMBOSIS PROPHYLAXIS
     Dosage: 5MG PER DAY
     Route: 058
     Dates: start: 20100712, end: 20100723

REACTIONS (7)
  - OVERDOSE [None]
  - MEDICATION ERROR [None]
  - ABDOMINAL PAIN [None]
  - PALLOR [None]
  - MUSCLE HAEMORRHAGE [None]
  - ANAEMIA [None]
  - SHOCK [None]
